FAERS Safety Report 7876376-X (Version None)
Quarter: 2011Q4

REPORT INFORMATION
  Report Type: 
  Country: None (occurrence: None)
  Receive Date: 20111031
  Receipt Date: 20111027
  Transmission Date: 20120403
  Serious: Yes (Other)
  Sender: FDA-Public Use
  Company Number: DE-MERCK-1107DEU00003

PATIENT
  Age: 59 Year
  Sex: Male

DRUGS (5)
  1. PREGABALIN [Concomitant]
     Route: 065
  2. PREDNISONE [Concomitant]
     Route: 065
  3. RAMIPRIL [Concomitant]
     Route: 065
  4. JANUMET [Suspect]
     Route: 048
     Dates: start: 20110301, end: 20110617
  5. PANTOPRAZOLE SODIUM [Concomitant]
     Route: 065

REACTIONS (1)
  - GAMMA-GLUTAMYLTRANSFERASE INCREASED [None]
